FAERS Safety Report 5458628-6 (Version None)
Quarter: 2007Q3

REPORT INFORMATION
  Report Type: 
  Country: None (occurrence: None)
  Receive Date: 20070919
  Receipt Date: 20070509
  Transmission Date: 20080115
  Serious: No
  Sender: FDA-Public Use
  Company Number: US-ASTRAZENECA-2007UW06741

PATIENT
  Age: 50 Year
  Sex: Female
  Weight: 75.9 kg

DRUGS (2)
  1. SEROQUEL [Suspect]
     Indication: BIPOLAR II DISORDER
     Route: 048
  2. SUPPLEMENT 5 HTP [Concomitant]
     Route: 048

REACTIONS (1)
  - RESTLESS LEGS SYNDROME [None]
